FAERS Safety Report 20317792 (Version 2)
Quarter: 2022Q2

REPORT INFORMATION
  Report Type: Spontaneous
  Country: BR (occurrence: BR)
  Receive Date: 20220110
  Receipt Date: 20220628
  Transmission Date: 20220720
  Serious: Yes (Hospitalization, Other)
  Sender: FDA-Public Use
  Company Number: BR-GLAXOSMITHKLINE-BR2022AMR000325

PATIENT

DRUGS (1)
  1. SERETIDE [Suspect]
     Active Substance: FLUTICASONE PROPIONATE\SALMETEROL XINAFOATE
     Indication: Product used for unknown indication
     Dosage: UNK, 50/250MCG, 60 DOSES
     Route: 055

REACTIONS (5)
  - Respiratory disorder [Unknown]
  - Anxiety [Unknown]
  - Illness [Unknown]
  - Therapy cessation [Unknown]
  - Product label confusion [Unknown]
